FAERS Safety Report 7602221-3 (Version None)
Quarter: 2011Q3

REPORT INFORMATION
  Report Type: 
  Country: None (occurrence: None)
  Receive Date: 20110711
  Receipt Date: 20110630
  Transmission Date: 20111222
  Serious: Yes (Hospitalization)
  Sender: FDA-Public Use
  Company Number: US-ASTRAZENECA-2010SE48550

PATIENT
  Age: 53 Year
  Sex: Male

DRUGS (6)
  1. VALIUM [Concomitant]
  2. CRESTOR [Suspect]
     Route: 048
  3. CRESTOR [Suspect]
     Route: 048
  4. PLAVIX [Concomitant]
  5. AVAPRO [Concomitant]
  6. ZETIA [Concomitant]

REACTIONS (5)
  - ARTERIAL OCCLUSIVE DISEASE [None]
  - DYSURIA [None]
  - STENT PLACEMENT [None]
  - PANIC ATTACK [None]
  - DYSLEXIA [None]
